FAERS Safety Report 8286541-8 (Version None)
Quarter: 2012Q2

REPORT INFORMATION
  Report Type: 
  Country: None (occurrence: None)
  Receive Date: 20120416
  Receipt Date: 20120402
  Transmission Date: 20120825
  Serious: Yes (Other)
  Sender: FDA-Public Use
  Company Number: US-SANOFI-AVENTIS-2012SA023457

PATIENT
  Sex: Female

DRUGS (1)
  1. DIABETA [Suspect]

REACTIONS (1)
  - PANCREATIC CARCINOMA STAGE IV [None]
